FAERS Safety Report 8538596-0 (Version None)
Quarter: 2012Q3

REPORT INFORMATION
  Report Type: 
  Country: None (occurrence: None)
  Receive Date: 20120718
  Receipt Date: 20120718
  Transmission Date: 20120928
  Serious: Yes (Other)
  Sender: FDA-Public Use
  Company Number: None

PATIENT
  Age: 59 Year
  Sex: Female
  Weight: 56.6996 kg

DRUGS (2)
  1. BUDESONIDE [Suspect]
     Indication: COLITIS
     Dosage: 2X 2 DAILY
     Dates: start: 20120615
  2. BUDESONIDE [Suspect]
     Indication: COLITIS
     Dosage: 2X 2 DAILY
     Dates: start: 20120517, end: 20120517

REACTIONS (3)
  - HERPES ZOSTER OPHTHALMIC [None]
  - HERPES ZOSTER [None]
  - IMMUNE SYSTEM DISORDER [None]
